FAERS Safety Report 4345738-X (Version None)
Quarter: 2004Q2

REPORT INFORMATION
  Report Type: 
  Country: None (occurrence: None)
  Receive Date: 20040423
  Receipt Date: 20040409
  Transmission Date: 20050107
  Serious: Yes (Hospitalization)
  Sender: FDA-Public Use
  Company Number: JP-JNJFOC-20040402638

PATIENT
  Age: 32 Year
  Sex: Male
  Weight: 60 kg

DRUGS (16)
  1. REMICADE [Suspect]
     Indication: CROHN'S DISEASE
     Dosage: SEE IMAGE
     Route: 042
     Dates: start: 20030602, end: 20030602
  2. REMICADE [Suspect]
     Indication: CROHN'S DISEASE
     Dosage: SEE IMAGE
     Route: 042
     Dates: start: 20030912, end: 20030912
  3. REMICADE [Suspect]
     Indication: CROHN'S DISEASE
     Dosage: SEE IMAGE
     Route: 042
     Dates: start: 20031107, end: 20031107
  4. REMICADE [Suspect]
     Indication: CROHN'S DISEASE
     Dosage: SEE IMAGE
     Route: 042
     Dates: start: 20031218, end: 20031218
  5. REMICADE [Suspect]
     Indication: CROHN'S DISEASE
     Dosage: SEE IMAGE
     Route: 042
     Dates: start: 20040105, end: 20040105
  6. REMICADE [Suspect]
     Indication: CROHN'S DISEASE
     Dosage: SEE IMAGE
     Route: 042
     Dates: start: 20040206, end: 20040206
  7. REMICADE [Suspect]
     Indication: CROHN'S DISEASE
     Dosage: SEE IMAGE
     Route: 042
     Dates: start: 20040314, end: 20040314
  8. PREDNISOLONE [Concomitant]
  9. MERCAPTOPURINE [Concomitant]
  10. PENTASA [Concomitant]
  11. CORONEL (ALL OTHER THERAPEUTIC PRODUCTS) [Concomitant]
  12. SILECE (FLUNITRAZEPAM) [Concomitant]
  13. PELTAZON (PENTAZOCINE) [Concomitant]
  14. ROCEPHIN [Concomitant]
  15. TOTAL PARENTERAL NUTRITION (POLYVINYL ALCOHOL) [Concomitant]
  16. . [Concomitant]

REACTIONS (2)
  - GASTROINTESTINAL HAEMORRHAGE [None]
  - INFECTION [None]
